FAERS Safety Report 13528176 (Version 1)
Quarter: 2017Q2

REPORT INFORMATION
  Report Type: Spontaneous
  Country: FR (occurrence: FR)
  Receive Date: 20170509
  Receipt Date: 20170509
  Transmission Date: 20170830
  Serious: Yes (Death)
  Sender: FDA-Public Use
  Company Number: FR-INCYTE CORPORATION-2017IN003617

PATIENT

DRUGS (2)
  1. ANTI-TUMOR NECROSIS FACTOR MONOCLON. ANTIBODY [Suspect]
     Active Substance: UNSPECIFIED INGREDIENT
     Indication: GRAFT VERSUS HOST DISEASE
     Route: 065
  2. JAKAVI [Suspect]
     Active Substance: RUXOLITINIB
     Indication: GRAFT VERSUS HOST DISEASE
     Dosage: 10 MG, BID
     Route: 065

REACTIONS (3)
  - Graft versus host disease [Fatal]
  - Treatment failure [Unknown]
  - Product use in unapproved indication [Unknown]
